FAERS Safety Report 5074174-6 (Version None)
Quarter: 2006Q3

REPORT INFORMATION
  Report Type: 
  Country: None (occurrence: None)
  Receive Date: 20060808
  Receipt Date: 20050330
  Transmission Date: 20061208
  Serious: Yes (Life-Threatening)
  Sender: FDA-Public Use
  Company Number: FR-BRISTOL-MYERS SQUIBB COMPANY-12941423

PATIENT
  Age: 38 Year
  Sex: Male
  Weight: 60 kg

DRUGS (6)
  1. REYATAZ [Suspect]
     Indication: HIV INFECTION
     Route: 048
     Dates: start: 20040528
  2. NORVIR [Suspect]
     Indication: HIV INFECTION
     Route: 048
     Dates: start: 20040528
  3. VIREAD [Concomitant]
     Indication: HIV INFECTION
     Dates: start: 20040528
  4. EPIVIR [Concomitant]
     Indication: HIV INFECTION
     Dates: start: 20040528
  5. SUBUTEX [Concomitant]
     Indication: DRUG DEPENDENCE
     Dates: start: 19971008
  6. SERESTA [Concomitant]
     Indication: DEPENDENCE
     Dates: start: 20010115

REACTIONS (2)
  - ASCITES [None]
  - HEPATIC FAILURE [None]
